FAERS Safety Report 8548770-5 (Version None)
Quarter: 2012Q3

REPORT INFORMATION
  Report Type: 
  Country: None (occurrence: None)
  Receive Date: 20120730
  Receipt Date: 20120724
  Transmission Date: 20120928
  Serious: Yes (Other)
  Sender: FDA-Public Use
  Company Number: PHHY2012BR064829

PATIENT
  Sex: Female

DRUGS (7)
  1. ISOSORBIDE MONONITRATE [Concomitant]
  2. CLONIDINE HYDROCHLORIDE [Concomitant]
  3. METOPROLOL SUCCINATE [Concomitant]
  4. DIOVAN HCT [Suspect]
     Dates: start: 20111103
  5. LERCANIDIPINE [Concomitant]
  6. ROSUVASTATIN [Concomitant]
  7. ASPIRIN [Concomitant]

REACTIONS (4)
  - DIABETES MELLITUS [None]
  - BLOOD TRIGLYCERIDES INCREASED [None]
  - CARDIAC DISORDER [None]
  - BLOOD PRESSURE INCREASED [None]
